FAERS Safety Report 4818249-2 (Version None)
Quarter: 2005Q4

REPORT INFORMATION
  Report Type: 
  Country: None (occurrence: None)
  Receive Date: 20051102
  Receipt Date: 20051025
  Transmission Date: 20060501
  Serious: Yes (Hospitalization)
  Sender: FDA-Public Use
  Company Number: FR-AVENTIS-200513552FR

PATIENT
  Age: 75 Year
  Sex: Female

DRUGS (11)
  1. CORTANCYL [Suspect]
     Indication: RHEUMATOID ARTHRITIS
     Route: 048
  2. ARAVA [Suspect]
     Indication: RHEUMATOID ARTHRITIS
     Route: 048
  3. VASTEN [Suspect]
     Route: 048
  4. SELOKEN [Suspect]
     Route: 048
  5. MOPRAL [Suspect]
     Route: 048
  6. STABLON [Suspect]
     Route: 048
  7. SOLU-MEDROL [Concomitant]
     Route: 048
  8. COUMADIN [Concomitant]
     Route: 048
  9. SEGLOR [Concomitant]
     Route: 048
  10. ALLOPURINOL [Concomitant]
     Route: 048
  11. STILNOX [Concomitant]
     Route: 048

REACTIONS (2)
  - COLITIS [None]
  - DIARRHOEA [None]
